FAERS Safety Report 6123732-6 (Version None)
Quarter: 2009Q1

REPORT INFORMATION
  Report Type: 
  Country: None (occurrence: None)
  Receive Date: 20090319
  Receipt Date: 20090309
  Transmission Date: 20090719
  Serious: Yes (Other)
  Sender: FDA-Public Use
  Company Number: CA-ABBOTT-09P-028-0561492-00

PATIENT
  Sex: Male

DRUGS (6)
  1. LUPRON DEPOT [Suspect]
     Indication: PROSTATE CANCER
     Dates: start: 20050816, end: 20081127
  2. DALAMANE [Concomitant]
     Indication: DRUG USE FOR UNKNOWN INDICATION
     Dosage: AT BEDTIME
  3. REMERON [Concomitant]
     Indication: DRUG USE FOR UNKNOWN INDICATION
  4. CASODEX [Concomitant]
     Indication: DRUG USE FOR UNKNOWN INDICATION
  5. IMOVANC [Concomitant]
     Indication: DRUG USE FOR UNKNOWN INDICATION
  6. PROSCAR [Concomitant]
     Indication: DRUG USE FOR UNKNOWN INDICATION
     Dosage: 5MG X 1/4 TABLET DAILY

REACTIONS (2)
  - FALL [None]
  - FOOT FRACTURE [None]
